FAERS Safety Report 23705539 (Version 1)
Quarter: 2024Q2

REPORT INFORMATION
  Report Type: Spontaneous
  Country: US (occurrence: US)
  Receive Date: 20240404
  Receipt Date: 20240404
  Transmission Date: 20240716
  Serious: Yes (Other)
  Sender: FDA-Public Use
  Company Number: US-SUN PHARMACEUTICAL INDUSTRIES LTD-2024R1-439514

PATIENT
  Age: 40 Year
  Sex: Male

DRUGS (2)
  1. FENOFIBRATE [Suspect]
     Active Substance: FENOFIBRATE
     Indication: Non-alcoholic steatohepatitis
     Dosage: UNK
     Route: 065
  2. NIACIN [Suspect]
     Active Substance: NIACIN
     Indication: Non-alcoholic steatohepatitis
     Dosage: UNK
     Route: 065

REACTIONS (1)
  - Pancreatitis [Unknown]
